FAERS Safety Report 11372747 (Version 1)
Quarter: 2015Q3

REPORT INFORMATION
  Report Type: Spontaneous
  Country: US (occurrence: US)
  Receive Date: 20150811
  Receipt Date: 20150811
  Transmission Date: 20151125
  Serious: No
  Sender: FDA-Public Use
  Company Number: US-ELI_LILLY_AND_COMPANY-US201209001125

PATIENT
  Age: 59 Year
  Sex: Male

DRUGS (2)
  1. PENICILLIN                         /00000901/ [Concomitant]
     Active Substance: PENICILLIN G
  2. AXIRON [Suspect]
     Active Substance: TESTOSTERONE
     Indication: BLOOD TESTOSTERONE DECREASED
     Dosage: 60 MG, QD
     Dates: start: 201208

REACTIONS (5)
  - Pruritus genital [Unknown]
  - Malaise [Unknown]
  - Genital erythema [Unknown]
  - Genital discomfort [Unknown]
  - Skin burning sensation [Unknown]
